FAERS Safety Report 15125747 (Version 3)
Quarter: 2018Q3

REPORT INFORMATION
  Report Type: Report from Study
  Country: FR (occurrence: FR)
  Receive Date: 20180710
  Receipt Date: 20180829
  Transmission Date: 20181010
  Serious: Yes (Other)
  Sender: FDA-Public Use
  Company Number: PHHO2018FR008012

PATIENT
  Age: 49 Year
  Sex: Male
  Weight: 90 kg

DRUGS (4)
  1. PEGASYS [Suspect]
     Active Substance: PEGINTERFERON ALFA-2A
     Dosage: 45 UG, QW
     Route: 065
     Dates: start: 20180426
  2. PEGASYS [Suspect]
     Active Substance: PEGINTERFERON ALFA-2A
     Indication: CHRONIC MYELOID LEUKAEMIA
     Dosage: 45 UG, QW
     Route: 065
     Dates: start: 20160531, end: 20160613
  3. AMN107 [Suspect]
     Active Substance: NILOTINIB
     Indication: CHRONIC MYELOID LEUKAEMIA
     Dosage: 300 MG, BID
     Route: 048
     Dates: start: 20160622
  4. DEXERYL [Concomitant]
     Indication: CUTANEOUS COCCIDIOIDOMYCOSIS
     Dosage: UNK
     Route: 065
     Dates: start: 20180426

REACTIONS (1)
  - Hyperbilirubinaemia [Not Recovered/Not Resolved]

NARRATIVE: CASE EVENT DATE: 20180426
